FAERS Safety Report 18258015 (Version 1)
Quarter: 2020Q3

REPORT INFORMATION
  Report Type: Spontaneous
  Country: CA (occurrence: CA)
  Receive Date: 20200911
  Receipt Date: 20200911
  Transmission Date: 20201103
  Serious: Yes (Hospitalization)
  Sender: FDA-Public Use
  Company Number: CA-PFIZER INC-2020351045

PATIENT
  Sex: Male

DRUGS (1)
  1. RAPAMUNE [Suspect]
     Active Substance: SIROLIMUS
     Indication: PROPHYLAXIS AGAINST TRANSPLANT REJECTION
     Dosage: 2 MG, 1X/DAY

REACTIONS (3)
  - Drug reaction with eosinophilia and systemic symptoms [Recovered/Resolved with Sequelae]
  - Rash maculo-papular [Recovered/Resolved with Sequelae]
  - Blood creatinine increased [Recovered/Resolved with Sequelae]
